FAERS Safety Report 8896748 (Version 1)
Quarter: 2012Q4

REPORT INFORMATION
  Report Type: Spontaneous
  Country: US (occurrence: None)
  Receive Date: 20121107
  Receipt Date: 20121107
  Transmission Date: 20130627
  Serious: Yes (Life-Threatening)
  Sender: FDA-Public Use
  Company Number: None

PATIENT
  Age: 66 Year
  Sex: Female
  Weight: 79.6 kg

DRUGS (12)
  1. PRADAXA 150MG BOEHRINGER INGLEHEIM [Suspect]
     Indication: ATRIAL FIBRILLATION
     Dosage: 150mg BID  po
     Route: 048
  2. ALLOPURINOL [Concomitant]
  3. AMLODIPINE [Concomitant]
  4. LUMIGAN [Concomitant]
  5. LANTUS [Concomitant]
  6. HUMALOG [Concomitant]
  7. MAGOX [Concomitant]
  8. METOPROLOL [Concomitant]
  9. PANTOPRAZOLE [Concomitant]
  10. PREDNISONE [Concomitant]
  11. BACTRIM [Concomitant]
  12. TACROLIMUS [Concomitant]

REACTIONS (16)
  - Abdominal pain [None]
  - Nausea [None]
  - Vomiting [None]
  - Diarrhoea [None]
  - Dehydration [None]
  - Hyperglycaemia [None]
  - Hyperglycaemic hyperosmolar nonketotic syndrome [None]
  - Renal failure acute [None]
  - Hypokalaemia [None]
  - Hyponatraemia [None]
  - Leukocytosis [None]
  - Coagulopathy [None]
  - Hypoxia [None]
  - Heart rate decreased [None]
  - Puncture site haemorrhage [None]
  - Haematoma [None]
